FAERS Safety Report 6279350-2 (Version None)
Quarter: 2009Q3

REPORT INFORMATION
  Report Type: 
  Country: None (occurrence: None)
  Receive Date: 20090723
  Receipt Date: 20080716
  Transmission Date: 20100115
  Serious: Yes (Other)
  Sender: FDA-Public Use
  Company Number: US-AMGEN-US295434

PATIENT
  Sex: Male

DRUGS (14)
  1. PROCRIT [Suspect]
     Indication: MYELODYSPLASTIC SYNDROME
     Route: 065
     Dates: start: 20080319
  2. LIPITOR [Concomitant]
     Route: 048
  3. FOLIC ACID [Concomitant]
     Route: 048
  4. CENTRUM SILVER [Concomitant]
     Route: 048
  5. ASPIRIN [Concomitant]
     Route: 048
  6. VITAMIN B-12 [Concomitant]
     Route: 065
  7. LOTEPREDNOL ETABONATE [Concomitant]
     Route: 047
  8. TOBRAMYCIN [Concomitant]
     Route: 047
  9. TIMOLOL MALEATE [Concomitant]
     Route: 047
  10. XANAX [Concomitant]
  11. BALSALAZIDE [Concomitant]
  12. TOPROL-XL [Concomitant]
  13. LISINOPRIL [Concomitant]
  14. FLOMAX [Concomitant]

REACTIONS (2)
  - EYE INFECTION [None]
  - HAEMOGLOBIN DECREASED [None]
